FAERS Safety Report 4335355-X (Version None)
Quarter: 2004Q2

REPORT INFORMATION
  Report Type: 
  Country: None (occurrence: None)
  Receive Date: 20040409
  Receipt Date: 20040305
  Transmission Date: 20050107
  Serious: Yes (Hospitalization, Other)
  Sender: FDA-Public Use
  Company Number: 200411748US

PATIENT
  Age: 83 Year
  Sex: Male

DRUGS (12)
  1. NILANDRON [Suspect]
     Indication: PROSTATE CANCER METASTATIC
     Dates: start: 20040121
  2. ZOMETA [Concomitant]
     Dosage: DOSE: UNK
     Dates: start: 20040220
  3. LUPRON [Concomitant]
     Dosage: DOSE: 3 MONTH INJECTIONS
     Dates: start: 20040220
  4. LANOXIN [Concomitant]
     Route: 048
  5. COUMADIN [Concomitant]
     Dosage: DOSE: 5 FOR 6 DAYS
     Route: 048
  6. PRILOSEC [Concomitant]
     Route: 048
  7. PRAVACHOL [Concomitant]
     Route: 048
  8. TRICOR [Concomitant]
     Route: 048
  9. DETROL [Concomitant]
     Route: 048
  10. ARICEPT [Concomitant]
     Route: 048
  11. FOLTX [Concomitant]
     Dosage: DOSE: 1 TABLET
     Route: 048
  12. PROSCAR [Concomitant]
     Route: 048

REACTIONS (10)
  - ARRHYTHMIA [None]
  - ASTHENIA [None]
  - BRONCHIECTASIS [None]
  - CARDIAC MURMUR [None]
  - FATIGUE [None]
  - HAEMATURIA [None]
  - HYPERSENSITIVITY [None]
  - PNEUMONITIS [None]
  - PULMONARY FIBROSIS [None]
  - RESPIRATORY DISTRESS [None]
